FAERS Safety Report 25637189 (Version 1)
Quarter: 2025Q3

REPORT INFORMATION
  Report Type: Report from Study
  Country: US (occurrence: US)
  Receive Date: 20250804
  Receipt Date: 20250804
  Transmission Date: 20251021
  Serious: Yes (Other)
  Sender: ROCHE
  Company Number: US-ROCHE-10000350721

PATIENT

DRUGS (7)
  1. ATEZOLIZUMAB [Suspect]
     Active Substance: ATEZOLIZUMAB
     Indication: Neoplasm malignant
     Route: 065
  2. PEMBROLIZUMAB [Suspect]
     Active Substance: PEMBROLIZUMAB
     Indication: Neoplasm malignant
     Route: 065
  3. NIVOLUMAB [Suspect]
     Active Substance: NIVOLUMAB
     Indication: Neoplasm malignant
     Route: 065
  4. NELVUTAMIG [Suspect]
     Active Substance: NELVUTAMIG
     Indication: Neoplasm malignant
     Route: 065
  5. CEMIPLIMAB [Suspect]
     Active Substance: CEMIPLIMAB
     Indication: Neoplasm malignant
     Route: 065
  6. DURVALUMAB [Suspect]
     Active Substance: DURVALUMAB
     Indication: Neoplasm malignant
     Route: 065
  7. AVELUMAB [Suspect]
     Active Substance: AVELUMAB
     Indication: Neoplasm malignant
     Route: 065

REACTIONS (10)
  - Colitis [Unknown]
  - Pneumonitis [Unknown]
  - Hepatitis [Unknown]
  - Adrenal insufficiency [Unknown]
  - Nephritis [Unknown]
  - Dermatitis [Unknown]
  - Hypothyroidism [Unknown]
  - Ototoxicity [Unknown]
  - Pancreatitis [Unknown]
  - Tenosynovitis [Unknown]
